FAERS Safety Report 15546155 (Version 1)
Quarter: 2018Q4

REPORT INFORMATION
  Report Type: Spontaneous
  Country: US (occurrence: US)
  Receive Date: 20181018
  Receipt Date: 20181018
  Transmission Date: 20190205
  Serious: No
  Sender: FDA-Public Use
  Company Number: None

PATIENT
  Age: 38 Year
  Sex: Female
  Weight: 56.25 kg

DRUGS (2)
  1. BENLYSTA [Suspect]
     Active Substance: BELIMUMAB
     Indication: SYSTEMIC LUPUS ERYTHEMATOSUS
     Dosage: INFUSE 509.9MG INTRAVENOUSLY OVER 1 HOUR EVERY 4 WEEKS AS DIRECTED
     Route: 042
     Dates: start: 201508
  2. BENLYSTA [Suspect]
     Active Substance: BELIMUMAB
     Indication: SYSTEMIC LUPUS ERYTHEMATOSUS
     Dosage: INFUSE 581.82MG VIA INTRAVENOUSLY OVER 1 HR ON DAY 1, DAY 14, \T\ DAY 28 AS DIRECTED
     Route: 042
     Dates: start: 201712

REACTIONS (4)
  - Hysterectomy [None]
  - Arthralgia [None]
  - Energy increased [None]
  - Therapeutic response shortened [None]
